FAERS Safety Report 15483290 (Version 2)
Quarter: 2018Q4

REPORT INFORMATION
  Report Type: Spontaneous
  Country: US (occurrence: US)
  Receive Date: 20181010
  Receipt Date: 20181115
  Transmission Date: 20190205
  Serious: No
  Sender: FDA-Public Use
  Company Number: US-PFIZER INC-2018403411

PATIENT
  Age: 64 Year
  Sex: Male
  Weight: 141.9 kg

DRUGS (3)
  1. DULOXETINE. [Concomitant]
     Active Substance: DULOXETINE
     Indication: DEPRESSION
     Dosage: UNK
  2. LYRICA [Suspect]
     Active Substance: PREGABALIN
     Dosage: 150 MG, DAILY (ONE DURING THE DAY AND 2 AT NIGHT)
     Route: 048
     Dates: start: 201809
  3. LYRICA [Suspect]
     Active Substance: PREGABALIN
     Indication: NEURALGIA
     Dosage: 50 MG, ONCE A DAY (ONE TABLET AT NIGHT)
     Route: 048
     Dates: start: 201809

REACTIONS (5)
  - Drug effect incomplete [Unknown]
  - Euphoric mood [Not Recovered/Not Resolved]
  - Flushing [Not Recovered/Not Resolved]
  - Anger [Not Recovered/Not Resolved]
  - Product packaging issue [Unknown]

NARRATIVE: CASE EVENT DATE: 201809
